FAERS Safety Report 14433730 (Version 1)
Quarter: 2018Q1

REPORT INFORMATION
  Report Type: Spontaneous
  Country: US (occurrence: US)
  Receive Date: 20180124
  Receipt Date: 20180124
  Transmission Date: 20180509
  Serious: Yes (Other)
  Sender: FDA-Public Use
  Company Number: US-INDIVIOR LIMITED-INDV-108083-2018

PATIENT
  Sex: Male

DRUGS (3)
  1. SUBOXONE [Suspect]
     Active Substance: BUPRENORPHINE HYDROCHLORIDE\NALOXONE HYDROCHLORIDE
     Indication: DRUG DEPENDENCE
     Dosage: UNK
     Route: 065
  2. SUBOXONE [Suspect]
     Active Substance: BUPRENORPHINE HYDROCHLORIDE\NALOXONE HYDROCHLORIDE
     Dosage: 1/8TH OF THE STRIP, UNK
     Route: 065
     Dates: start: 201710
  3. SUBOXONE [Suspect]
     Active Substance: BUPRENORPHINE HYDROCHLORIDE\NALOXONE HYDROCHLORIDE
     Indication: DRUG DEPENDENCE
     Dosage: 8 MG, TID
     Route: 065
     Dates: start: 20030412

REACTIONS (14)
  - Depression [Unknown]
  - Paranoia [Unknown]
  - Wrong technique in product usage process [Recovered/Resolved]
  - Intentional underdose [Recovered/Resolved]
  - Product use issue [Recovered/Resolved]
  - Drug withdrawal syndrome [Unknown]
  - Hallucination [Unknown]
  - Tachyphrenia [Unknown]
  - Tooth loss [Unknown]
  - Anxiety [Unknown]
  - Therapy cessation [Recovered/Resolved]
  - Pain [Unknown]
  - Adverse event [Unknown]
  - Bone pain [Unknown]

NARRATIVE: CASE EVENT DATE: 2017
